FAERS Safety Report 4598481-6 (Version None)
Quarter: 2005Q1

REPORT INFORMATION
  Report Type: 
  Country: None (occurrence: None)
  Receive Date: 20050303
  Receipt Date: 20050303
  Transmission Date: 20050727
  Serious: Yes (Life-Threatening)
  Sender: FDA-Public Use
  Company Number: None

PATIENT
  Age: 86 Year
  Sex: Male
  Weight: 52 kg

DRUGS (4)
  1. MIDAZOLAM       1.5MG [Suspect]
     Indication: ECHOCARDIOGRAM
     Dosage: 1.5MG   ONCE   INTRAVENOU
     Route: 042
     Dates: start: 20050301, end: 20050301
  2. MIDAZOLAM       1.5MG [Suspect]
     Indication: SEDATIVE THERAPY
     Dosage: 1.5MG   ONCE   INTRAVENOU
     Route: 042
     Dates: start: 20050301, end: 20050301
  3. FENTANYL [Suspect]
     Indication: ECHOCARDIOGRAM
     Dosage: 25MCG    ONCE   INTRAVENOU
     Route: 042
     Dates: start: 20050301, end: 20050301
  4. FENTANYL [Suspect]
     Indication: SEDATIVE THERAPY
     Dosage: 25MCG    ONCE   INTRAVENOU
     Route: 042
     Dates: start: 20050301, end: 20050301

REACTIONS (1)
  - RESPIRATORY ARREST [None]
